FAERS Safety Report 22616969 (Version 1)
Quarter: 2023Q2

REPORT INFORMATION
  Report Type: Spontaneous
  Country: US (occurrence: US)
  Receive Date: 20230619
  Receipt Date: 20230619
  Transmission Date: 20230721
  Serious: Yes (Other)
  Sender: FDA-Public Use
  Company Number: US-BRISTOL-MYERS SQUIBB COMPANY-2023-086133

PATIENT
  Age: 65 Year
  Sex: Male
  Weight: 62.14 kg

DRUGS (1)
  1. OPDIVO [Suspect]
     Active Substance: NIVOLUMAB
     Indication: Gastric cancer
     Dosage: DOSE : 240MG;     FREQ : EVERY WEEKS

REACTIONS (2)
  - Malignant neoplasm progression [Unknown]
  - Off label use [Unknown]
